FAERS Safety Report 15849722 (Version 1)
Quarter: 2019Q1

REPORT INFORMATION
  Report Type: Spontaneous
  Country: FR (occurrence: FR)
  Receive Date: 20190121
  Receipt Date: 20190121
  Transmission Date: 20190417
  Serious: Yes (Hospitalization)
  Sender: FDA-Public Use
  Company Number: FR-MYLANLABS-2019M1004254

PATIENT
  Age: 75 Year
  Sex: Male
  Weight: 63 kg

DRUGS (5)
  1. IDARUBICIN [Suspect]
     Active Substance: IDARUBICIN
     Indication: ACUTE MYELOID LEUKAEMIA
     Dosage: UNK
     Dates: start: 20180515
  2. ARACYTINE [Suspect]
     Active Substance: CYTARABINE
     Indication: ACUTE MYELOID LEUKAEMIA
     Dosage: UNK
     Dates: start: 20180515, end: 20180515
  3. ARACYTINE [Suspect]
     Active Substance: CYTARABINE
     Dosage: 3340 MILLIGRAM, CYCLE (DAY 5 OF FIRST CONSOLIDATION CO)
     Dates: start: 20180629
  4. ARACYTINE [Suspect]
     Active Substance: CYTARABINE
     Dosage: 3340 MILLIGRAM, CYCLE (3340 MG, CYCLIC (DAY 1 OF FIRST CONSOLIDATION COURSE))
     Dates: start: 20180625, end: 20180625
  5. ARACYTINE [Suspect]
     Active Substance: CYTARABINE
     Dosage: 3340 MILLIGRAM, CYCLE (DAY 3 OF FIRST CONSOLIDATION COURSE)
     Dates: start: 20180627, end: 20180627

REACTIONS (1)
  - Sepsis [Not Recovered/Not Resolved]

NARRATIVE: CASE EVENT DATE: 20180629
